FAERS Safety Report 6436411-2 (Version None)
Quarter: 2009Q4

REPORT INFORMATION
  Report Type: 
  Country: None (occurrence: None)
  Receive Date: 20091111
  Receipt Date: 20091107
  Transmission Date: 20100525
  Serious: Yes (Death, Other)
  Sender: FDA-Public Use
  Company Number: PHHY2009SA48673

PATIENT
  Age: 35 Year
  Sex: Male

DRUGS (1)
  1. VOLTAREN [Suspect]
     Indication: ANALGESIC THERAPY
     Dosage: 75 MG PER DAY
     Route: 030

REACTIONS (3)
  - ABDOMINAL PAIN UPPER [None]
  - ANURIA [None]
  - RENAL FAILURE ACUTE [None]
